FAERS Safety Report 12320949 (Version 2)
Quarter: 2016Q2

REPORT INFORMATION
  Report Type: Spontaneous
  Country: US (occurrence: US)
  Receive Date: 20160502
  Receipt Date: 20160517
  Transmission Date: 20160815
  Serious: No
  Sender: FDA-Public Use
  Company Number: PHEH2016US010618

PATIENT
  Sex: Female

DRUGS (1)
  1. RECLAST [Suspect]
     Active Substance: ZOLEDRONIC ACID
     Indication: PRODUCT USED FOR UNKNOWN INDICATION
     Route: 041
     Dates: start: 20140731

REACTIONS (10)
  - Pneumonia [Unknown]
  - Head discomfort [Unknown]
  - Eye disorder [Unknown]
  - Feeling abnormal [Unknown]
  - Dry eye [Unknown]
  - Limb discomfort [Unknown]
  - Gait disturbance [Unknown]
  - Pain [Unknown]
  - Asthenia [Unknown]
  - Weight decreased [Unknown]
